FAERS Safety Report 17227877 (Version 2)
Quarter: 2020Q1

REPORT INFORMATION
  Report Type: Spontaneous
  Country: DE (occurrence: DE)
  Receive Date: 20200103
  Receipt Date: 20200206
  Transmission Date: 20200409
  Serious: Yes (Other)
  Sender: FDA-Public Use
  Company Number: DE-ROCHE-2509635

PATIENT
  Age: 66 Year
  Sex: Male

DRUGS (2)
  1. RANIBIZUMAB. [Suspect]
     Active Substance: RANIBIZUMAB
     Indication: PRODUCT USED FOR UNKNOWN INDICATION
     Dosage: (5 BILATERAL INJECTIONS)
     Route: 031
  2. DEXAMETHASONE. [Concomitant]
     Active Substance: DEXAMETHASONE
     Indication: PRODUCT USED FOR UNKNOWN INDICATION
     Dosage: (5 BILATERAL INJECTIONS)
     Route: 031

REACTIONS (3)
  - Visual acuity reduced [Unknown]
  - Macular fibrosis [Unknown]
  - Vitreoretinal traction syndrome [Unknown]
